FAERS Safety Report 8295459-6 (Version None)
Quarter: 2012Q2

REPORT INFORMATION
  Report Type: 
  Country: None (occurrence: None)
  Receive Date: 20120418
  Receipt Date: 20120404
  Transmission Date: 20120825
  Serious: Yes (Death)
  Sender: FDA-Public Use
  Company Number: US-PFIZER INC-2011309994

PATIENT
  Age: 27 Year
  Sex: Female

DRUGS (4)
  1. DIAZEPAM [Suspect]
     Route: 048
  2. OXYCODONE HYDROCHLORIDE [Suspect]
     Route: 048
  3. OXYMORPHONE [Suspect]
     Route: 048
  4. NORDAZEPAM [Suspect]

REACTIONS (3)
  - RESPIRATORY ARREST [None]
  - DRUG ABUSE [None]
  - CARDIAC ARREST [None]
